FAERS Safety Report 19872291 (Version 1)
Quarter: 2021Q3

REPORT INFORMATION
  Report Type: Spontaneous
  Country: US (occurrence: US)
  Receive Date: 20210922
  Receipt Date: 20210922
  Transmission Date: 20211014
  Serious: Yes (Other)
  Sender: FDA-Public Use
  Company Number: US-PERRIGO-21US027084

PATIENT
  Age: 51 Year
  Sex: Female

DRUGS (2)
  1. RANITIDINE HYDROCHLORIDE (156) [Suspect]
     Active Substance: RANITIDINE HYDROCHLORIDE
     Indication: ABDOMINAL DISCOMFORT
  2. RANITIDINE HYDROCHLORIDE (156) [Suspect]
     Active Substance: RANITIDINE HYDROCHLORIDE
     Indication: GASTRIC ULCER
     Dosage: DOSE FREQUENCY: OCCASIONAL
     Route: 048
     Dates: start: 199201, end: 201801

REACTIONS (4)
  - Ovarian cancer [Unknown]
  - Hepatic cancer [Unknown]
  - Breast cancer [Unknown]
  - Pancreatic carcinoma [Unknown]

NARRATIVE: CASE EVENT DATE: 20190101
